FAERS Safety Report 9616884 (Version 4)
Quarter: 2014Q1

REPORT INFORMATION
  Report Type: Spontaneous
  Country: GB (occurrence: GB)
  Receive Date: 20131011
  Receipt Date: 20140324
  Transmission Date: 20141002
  Serious: Yes (Death, Hospitalization)
  Sender: FDA-Public Use
  Company Number: GB-VERTEX PHARMACEUTICALS INC-2013-010268

PATIENT
  Age: 56 Year
  Sex: Male
  Weight: 81.4 kg

DRUGS (9)
  1. INCIVO [Suspect]
     Indication: HEPATITIS C
     Dosage: 750 MG, TID
     Route: 048
     Dates: start: 20121029, end: 20130121
  2. PEGASYS [Suspect]
     Indication: HEPATITIS C
     Dosage: 180 ?G, QW
     Route: 058
     Dates: start: 20121029, end: 20130721
  3. COPEGUS [Suspect]
     Indication: HEPATITIS C
     Dosage: 200 MG, QD
     Route: 048
     Dates: start: 20121029, end: 20130721
  4. SIROLIMUS [Suspect]
     Indication: PROPHYLAXIS AGAINST TRANSPLANT REJECTION
     Dosage: 2 MG, QD
     Route: 048
     Dates: start: 20080904, end: 20080923
  5. NEORAL [Concomitant]
     Indication: PROPHYLAXIS AGAINST TRANSPLANT REJECTION
     Dosage: 75 MG, BID
     Route: 048
     Dates: start: 20091028, end: 201301
  6. FRUSEMIDE (FUROSEMIDE) [Concomitant]
     Indication: DIURETIC THERAPY
     Route: 048
     Dates: start: 20121011
  7. ERYTHROPOIETIN [Concomitant]
     Route: 058
     Dates: start: 20121119
  8. ASPIRIN [Concomitant]
     Indication: ANTICOAGULANT THERAPY
     Route: 048
     Dates: start: 20081104
  9. HYDROCORTISONE [Concomitant]
     Indication: PROPHYLAXIS AGAINST TRANSPLANT REJECTION
     Dosage: 50 MG, TID
     Route: 042
     Dates: start: 20130721

REACTIONS (8)
  - Upper gastrointestinal haemorrhage [Fatal]
  - Bronchopneumonia [Fatal]
  - Multi-organ failure [Fatal]
  - Hepatitis C [Fatal]
  - Renal failure acute [Not Recovered/Not Resolved]
  - Anaemia [Unknown]
  - Oesophageal candidiasis [Unknown]
  - Off label use [Unknown]
